FAERS Safety Report 5277126-6 (Version None)
Quarter: 2007Q1

REPORT INFORMATION
  Report Type: 
  Country: None (occurrence: None)
  Receive Date: 20061213
  Receipt Date: 20050218
  Transmission Date: 20070707
  Serious: No
  Sender: FDA-Public Use
  Company Number: 2005UW00585

PATIENT
  Age: 19 Year
  Sex: Male

DRUGS (4)
  1. SEROQUEL [Suspect]
     Indication: ABNORMAL BEHAVIOUR
     Dosage: 25 MG DAILY PO
     Route: 048
     Dates: start: 20000101, end: 20041001
  2. SEROQUEL [Suspect]
     Indication: ABNORMAL BEHAVIOUR
     Dosage: 50 MG DAILY PO
     Route: 048
     Dates: start: 20041101
  3. RITALIN [Concomitant]
  4. WELLBUTRIN [Concomitant]

REACTIONS (4)
  - ARTHRALGIA [None]
  - BACK PAIN [None]
  - GRAND MAL CONVULSION [None]
  - JOINT SWELLING [None]
